FAERS Safety Report 16738563 (Version 1)
Quarter: 2019Q3

REPORT INFORMATION
  Report Type: Spontaneous
  Country: DK (occurrence: DK)
  Receive Date: 20190826
  Receipt Date: 20190826
  Transmission Date: 20191005
  Serious: Yes (Death, Life-Threatening, Hospitalization, Other)
  Sender: FDA-Public Use
  Company Number: DK-BRISTOL-MYERS SQUIBB COMPANY-BMS-2019-082020

PATIENT
  Age: 66 Year
  Sex: Male

DRUGS (2)
  1. OPDIVO [Suspect]
     Active Substance: NIVOLUMAB
     Indication: MALIGNANT MELANOMA
     Dosage: STYRKE: 10 MG/ML
     Route: 042
     Dates: start: 201902
  2. ALMINOX FORTE [Concomitant]
     Indication: GASTRIC PH DECREASED
     Dosage: STYRKE: 500 MG+ 100 MG.
     Route: 048
     Dates: start: 20181222

REACTIONS (8)
  - Cholestasis [Fatal]
  - Renal disorder [Fatal]
  - Haemophagocytic lymphohistiocytosis [Fatal]
  - Immune-mediated hepatitis [Fatal]
  - Septic shock [Fatal]
  - Haemorrhagic diathesis [Fatal]
  - Myositis [Fatal]
  - Nephritis [Fatal]

NARRATIVE: CASE EVENT DATE: 2019
